FAERS Safety Report 6402192-1 (Version None)
Quarter: 2009Q4

REPORT INFORMATION
  Report Type: 
  Country: None (occurrence: None)
  Receive Date: 20091015
  Receipt Date: 20091005
  Transmission Date: 20100525
  Serious: Yes (Death, Hospitalization)
  Sender: FDA-Public Use
  Company Number: US-BAXTER-2009BH014532

PATIENT
  Sex: Male

DRUGS (4)
  1. DIANEAL [Suspect]
     Indication: PERITONEAL DIALYSIS
     Route: 033
     Dates: end: 20090901
  2. DIANEAL [Suspect]
     Route: 033
     Dates: end: 20090901
  3. DIANEAL [Suspect]
     Indication: PERITONEAL DIALYSIS
     Route: 033
     Dates: end: 20090901
  4. DIANEAL [Suspect]
     Route: 033
     Dates: end: 20090901

REACTIONS (2)
  - CARDIAC FAILURE CONGESTIVE [None]
  - INTESTINAL ISCHAEMIA [None]
